FAERS Safety Report 18359327 (Version 1)
Quarter: 2020Q4

REPORT INFORMATION
  Report Type: Spontaneous
  Country: US (occurrence: US)
  Receive Date: 20201008
  Receipt Date: 20201008
  Transmission Date: 20210114
  Serious: No
  Sender: FDA-Public Use
  Company Number: US-ASTRAZENECA-2020SF26256

PATIENT
  Sex: Male

DRUGS (1)
  1. BRILINTA [Suspect]
     Active Substance: TICAGRELOR
     Indication: ANTICOAGULANT THERAPY
     Route: 048
     Dates: start: 2019

REACTIONS (7)
  - Asthenia [Unknown]
  - Hyperhidrosis [Unknown]
  - Dizziness [Unknown]
  - Dyspnoea [Unknown]
  - Contusion [Unknown]
  - Product dose omission issue [Unknown]
  - Sleep disorder [Unknown]
